FAERS Safety Report 19182738 (Version 1)
Quarter: 2021Q2

REPORT INFORMATION
  Report Type: Spontaneous
  Country: US (occurrence: US)
  Receive Date: 20210426
  Receipt Date: 20210426
  Transmission Date: 20210717
  Serious: Yes (Other)
  Sender: FDA-Public Use
  Company Number: US-ELI_LILLY_AND_COMPANY-US202104007558

PATIENT
  Age: 73 Year
  Sex: Female

DRUGS (7)
  1. TYLENOL 8HR [Concomitant]
     Active Substance: ACETAMINOPHEN
     Indication: PAIN
  2. METFORMIN [Concomitant]
     Active Substance: METFORMIN HYDROCHLORIDE
     Indication: DIABETES MELLITUS
  3. TRULICITY [Suspect]
     Active Substance: DULAGLUTIDE
     Dosage: 1.5 MG, WEEKLY (1/W)
     Route: 058
     Dates: end: 202104
  4. HUMALOG [Suspect]
     Active Substance: INSULIN LISPRO
     Indication: DIABETES MELLITUS
     Dosage: UNK, UNKNOWN
     Route: 058
  5. TRULICITY [Suspect]
     Active Substance: DULAGLUTIDE
     Indication: DIABETES MELLITUS
     Dosage: 0.75 MG, WEEKLY (1/W)
     Route: 058
     Dates: start: 202103
  6. TRULICITY [Suspect]
     Active Substance: DULAGLUTIDE
     Dosage: 0.75 MG, WEEKLY (1/W)
     Route: 058
     Dates: start: 202104
  7. PREDNISONE. [Concomitant]
     Active Substance: PREDNISONE
     Indication: DIABETES MELLITUS

REACTIONS (10)
  - Asthenia [Not Recovered/Not Resolved]
  - Hypophagia [Unknown]
  - Decreased appetite [Unknown]
  - Fatigue [Recovering/Resolving]
  - Drug hypersensitivity [Unknown]
  - Nausea [Not Recovered/Not Resolved]
  - Retching [Not Recovered/Not Resolved]
  - Diarrhoea [Recovered/Resolved]
  - Vomiting [Recovering/Resolving]
  - Blood glucose increased [Unknown]

NARRATIVE: CASE EVENT DATE: 202103
